FAERS Safety Report 4409583-9 (Version None)
Quarter: 2004Q3

REPORT INFORMATION
  Report Type: 
  Country: None (occurrence: None)
  Receive Date: 20040723
  Receipt Date: 20040218
  Transmission Date: 20050211
  Serious: Yes (Hospitalization)
  Sender: FDA-Public Use
  Company Number: US-JNJFOC-20040206287

PATIENT
  Age: 76 Year
  Sex: Male

DRUGS (7)
  1. IMODIUM A-D [Suspect]
     Indication: DIARRHOEA
     Dosage: 2 MG, 1 IN 1 AS NECESSARY, ORAL
     Route: 048
     Dates: start: 20040130
  2. ACTOS [Suspect]
     Indication: DRUG USE FOR UNKNOWN INDICATION
     Dosage: ORAL
     Route: 048
     Dates: start: 20031201
  3. AMARYL [Concomitant]
  4. LISINOPRIL [Concomitant]
  5. METOPROLOL (METOPROLOL) [Concomitant]
  6. LIPITOR [Concomitant]
  7. ASPIRIN [Concomitant]

REACTIONS (3)
  - COLD SWEAT [None]
  - GASTROINTESTINAL ULCER HAEMORRHAGE [None]
  - MEDICATION ERROR [None]
